APPROVED DRUG PRODUCT: MEPERIDINE HYDROCHLORIDE
Active Ingredient: MEPERIDINE HYDROCHLORIDE
Strength: 100MG
Dosage Form/Route: TABLET;ORAL
Application: A040318 | Product #002
Applicant: DURAMED PHARMACEUTICALS INC SUB BARR LABORATORIES INC
Approved: Oct 5, 1999 | RLD: No | RS: No | Type: DISCN